FAERS Safety Report 18494245 (Version 1)
Quarter: 2020Q4

REPORT INFORMATION
  Report Type: Spontaneous
  Country: SE (occurrence: SE)
  Receive Date: 20201111
  Receipt Date: 20201111
  Transmission Date: 20210114
  Serious: No
  Sender: FDA-Public Use
  Company Number: SE-CANTON LABORATORIES, LLC-2095837

PATIENT
  Age: 57 Year
  Sex: Female

DRUGS (11)
  1. TARGINIQ ER [Suspect]
     Active Substance: NALOXONE HYDROCHLORIDE\OXYCODONE HYDROCHLORIDE
     Route: 065
     Dates: start: 20150920, end: 20150920
  2. VALERIAN ROOT [Suspect]
     Active Substance: VALERIAN
     Route: 065
     Dates: start: 20150920, end: 20150920
  3. NALOXONE / OXYCODONE [Suspect]
     Active Substance: NALOXONE HYDROCHLORIDE\OXYCODONE HYDROCHLORIDE
     Route: 065
     Dates: start: 20150920, end: 20150920
  4. OXASCAND [Suspect]
     Active Substance: OXAZEPAM
     Route: 065
     Dates: start: 20150920, end: 20150920
  5. PARACETAMOL [Suspect]
     Active Substance: ACETAMINOPHEN
     Route: 065
     Dates: start: 20150920, end: 20150920
  6. OMEPRAZOLE. [Suspect]
     Active Substance: OMEPRAZOLE
     Route: 065
     Dates: start: 20150920, end: 20150920
  7. OXYCODONE. [Concomitant]
     Active Substance: OXYCODONE HYDROCHLORIDE
     Route: 065
  8. NAPROSYN [Suspect]
     Active Substance: NAPROXEN
     Indication: SUICIDE ATTEMPT
     Route: 065
     Dates: start: 20150920, end: 20150920
  9. OXAZEPAM. [Suspect]
     Active Substance: OXAZEPAM
     Route: 065
     Dates: start: 20150920, end: 20150920
  10. OXAZEPAM. [Concomitant]
     Active Substance: OXAZEPAM
     Route: 065
  11. RINGER ACETATE [Concomitant]
     Active Substance: CALCIUM CHLORIDE\POTASSIUM CHLORIDE\SODIUM ACETATE

REACTIONS (4)
  - Intentional self-injury [Recovered/Resolved]
  - Toxicity to various agents [Recovered/Resolved]
  - Electrocardiogram QT prolonged [Recovered/Resolved]
  - Hypotension [Recovered/Resolved]

NARRATIVE: CASE EVENT DATE: 20150920
